FAERS Safety Report 10736072 (Version 1)
Quarter: 2015Q1

REPORT INFORMATION
  Report Type: Spontaneous
  Country: US (occurrence: None)
  Receive Date: 20150122
  Receipt Date: 20150122
  Transmission Date: 20150721
  Serious: No
  Sender: FDA-Public Use
  Company Number: None

PATIENT
  Age: 11 Year
  Sex: Male
  Weight: 40.82 kg

DRUGS (2)
  1. METHYLPHENIDATE [Suspect]
     Active Substance: METHYLPHENIDATE
     Indication: ATTENTION DEFICIT/HYPERACTIVITY DISORDER
     Dosage: 1 PILL ONCE DAILY TAKEN BY MOUTH
     Route: 048
  2. METHYLPHENIDATE [Suspect]
     Active Substance: METHYLPHENIDATE
     Indication: LANGUAGE DISORDER
     Dosage: 1 PILL ONCE DAILY TAKEN BY MOUTH
     Route: 048

REACTIONS (5)
  - Drug effect decreased [None]
  - Rash [None]
  - Product substitution issue [None]
  - Abdominal pain upper [None]
  - Headache [None]

NARRATIVE: CASE EVENT DATE: 20140901
